FAERS Safety Report 22143722 (Version 1)
Quarter: 2023Q1

REPORT INFORMATION
  Report Type: Report from Study
  Country: US (occurrence: US)
  Receive Date: 20230327
  Receipt Date: 20230327
  Transmission Date: 20230418
  Serious: Yes (Other)
  Sender: FDA-Public Use
  Company Number: US-APIL-2309484US

PATIENT
  Sex: Female

DRUGS (3)
  1. ATOGEPANT [Suspect]
     Active Substance: ATOGEPANT
     Indication: Product used for unknown indication
     Dosage: 30 MG
     Dates: start: 20220909
  2. ATOGEPANT [Suspect]
     Active Substance: ATOGEPANT
     Indication: Product used for unknown indication
     Dosage: 60 MG
     Dates: start: 20230308
  3. ATOGEPANT [Suspect]
     Active Substance: ATOGEPANT
     Dosage: 60 MG
     Dates: start: 20221209, end: 202302

REACTIONS (5)
  - Cerebral disorder [Unknown]
  - Therapy interrupted [Unknown]
  - Adverse event [Unknown]
  - Migraine [Recovering/Resolving]
  - Therapeutic response decreased [Unknown]
